FAERS Safety Report 6520290-9 (Version None)
Quarter: 2009Q4

REPORT INFORMATION
  Report Type: 
  Country: None (occurrence: None)
  Receive Date: 20091229
  Receipt Date: 20091221
  Transmission Date: 20100525
  Serious: Yes (Other)
  Sender: FDA-Public Use
  Company Number: PHHO2009US15790

PATIENT
  Sex: Male
  Weight: 104.3 kg

DRUGS (3)
  1. CERTICAN [Suspect]
     Indication: HEART TRANSPLANT
     Dosage: 0.75 MG, BID
     Route: 048
     Dates: start: 20070829, end: 20080825
  2. NEORAL [Suspect]
     Indication: PROPHYLAXIS AGAINST TRANSPLANT REJECTION
     Dosage: 125 MG, BID
     Route: 048
     Dates: start: 20070829, end: 20080916
  3. PREDNISONE [Suspect]
     Indication: PROPHYLAXIS AGAINST TRANSPLANT REJECTION

REACTIONS (1)
  - PROSTATE CANCER STAGE III [None]
